FAERS Safety Report 6149919-4 (Version None)
Quarter: 2009Q2

REPORT INFORMATION
  Report Type: 
  Country: None (occurrence: None)
  Receive Date: 20090409
  Receipt Date: 20090330
  Transmission Date: 20091009
  Serious: Yes (Hospitalization, Other)
  Sender: FDA-Public Use
  Company Number: US-ABBOTT-09P-163-0565437-00

PATIENT
  Sex: Female
  Weight: 108.05 kg

DRUGS (5)
  1. HUMIRA [Suspect]
     Indication: RHEUMATOID ARTHRITIS
     Route: 058
     Dates: start: 20060101, end: 20090301
  2. HUMIRA [Suspect]
     Dosage: PEN
     Route: 058
     Dates: start: 20090328
  3. METHOTREXATE [Concomitant]
     Indication: RHEUMATOID ARTHRITIS
  4. PLAQUENIL [Concomitant]
     Indication: RHEUMATOID ARTHRITIS
  5. LEUKOVORIN [Concomitant]
     Indication: RHEUMATOID ARTHRITIS

REACTIONS (5)
  - ERYTHEMA [None]
  - PAIN [None]
  - PAIN IN EXTREMITY [None]
  - RECTAL PROLAPSE [None]
  - SWELLING [None]
